FAERS Safety Report 25747569 (Version 3)
Quarter: 2025Q4

REPORT INFORMATION
  Report Type: Report from Study
  Country: US (occurrence: US)
  Receive Date: 20250901
  Receipt Date: 20251107
  Transmission Date: 20260117
  Serious: Yes (Hospitalization)
  Sender: RECORDATI
  Company Number: US-ORPHANEU-2025006093

PATIENT
  Sex: Male
  Weight: 14.512 kg

DRUGS (4)
  1. CARBAGLU [Suspect]
     Active Substance: CARGLUMIC ACID
     Indication: Propionic acidaemia
     Dosage: 350 MG (IN 2.5 ML OF WATER PER TABLET), BID (VIA G-TUBE)
     Dates: start: 2024, end: 2025
  2. CARBAGLU [Suspect]
     Active Substance: CARGLUMIC ACID
     Dosage: 350 MG (IN 2.5 ML OF WATER PER TABLET), BID (VIA G-TUBE) MORNING AND BEFORE BEDTIME
     Dates: start: 2025
  3. LEVOCARNITINE [Concomitant]
     Active Substance: LEVOCARNITINE
     Indication: Product used for unknown indication
     Dosage: POWDER
  4. KEPPRA [Concomitant]
     Active Substance: LEVETIRACETAM
     Indication: Product used for unknown indication
     Dosage: 100 MG/ML SOLUTION

REACTIONS (6)
  - Malaise [Recovered/Resolved]
  - COVID-19 [Unknown]
  - Hyperammonaemia [Recovered/Resolved]
  - Hyperammonaemia [Unknown]
  - Pneumonia [Unknown]
  - Vomiting [Unknown]

NARRATIVE: CASE EVENT DATE: 20250101
